FAERS Safety Report 5173175-7 (Version None)
Quarter: 2006Q4

REPORT INFORMATION
  Report Type: 
  Country: None (occurrence: None)
  Receive Date: 20061214
  Receipt Date: 20061207
  Transmission Date: 20070319
  Serious: Yes (Other)
  Sender: FDA-Public Use
  Company Number: US-AVENTIS-200619909US

PATIENT
  Age: 18 Year
  Sex: Male
  Weight: 86.36 kg

DRUGS (1)
  1. KETEK [Suspect]
     Indication: SINUSITIS
     Route: 048
     Dates: start: 20060602, end: 20060602

REACTIONS (15)
  - ABDOMINAL PAIN UPPER [None]
  - ALANINE AMINOTRANSFERASE INCREASED [None]
  - ASPARTATE AMINOTRANSFERASE INCREASED [None]
  - BILIRUBIN CONJUGATED INCREASED [None]
  - BLOOD ALKALINE PHOSPHATASE INCREASED [None]
  - BLOOD BILIRUBIN INCREASED [None]
  - CHROMATURIA [None]
  - HEADACHE [None]
  - HEPATITIS CHOLESTATIC [None]
  - JAUNDICE [None]
  - NAUSEA [None]
  - PRURITUS [None]
  - PYREXIA [None]
  - VISION BLURRED [None]
  - WEIGHT DECREASED [None]
